FAERS Safety Report 5445436-5 (Version None)
Quarter: 2007Q3

REPORT INFORMATION
  Report Type: 
  Country: None (occurrence: None)
  Receive Date: 20070906
  Receipt Date: 20070706
  Transmission Date: 20080115
  Serious: No
  Sender: FDA-Public Use
  Company Number: A0662179A

PATIENT
  Age: 42 Year
  Sex: Female

DRUGS (4)
  1. REQUIP [Suspect]
     Indication: RESTLESS LEGS SYNDROME
     Dosage: 3MG PER DAY
     Route: 048
     Dates: start: 20070401
  2. EFFEXOR [Concomitant]
  3. MULTI-VITAMIN [Concomitant]
  4. ESSENTIAL FATTY ACIDS [Concomitant]

REACTIONS (2)
  - DRUG INEFFECTIVE [None]
  - SOMNOLENCE [None]
